FAERS Safety Report 17359762 (Version 1)
Quarter: 2020Q1

REPORT INFORMATION
  Report Type: Report from Study
  Country: IT (occurrence: IT)
  Receive Date: 20200203
  Receipt Date: 20200203
  Transmission Date: 20200409
  Serious: Yes (Hospitalization)
  Sender: FDA-Public Use
  Company Number: IT-TEVA-2020-IT-1177443

PATIENT
  Age: 88 Year
  Sex: Male

DRUGS (3)
  1. ENALAPRIL MALEATE. [Suspect]
     Active Substance: ENALAPRIL MALEATE
     Indication: HYPERTENSION
     Dosage: 10 MG
     Route: 048
     Dates: start: 20180101, end: 20191113
  2. LASIX [Concomitant]
     Active Substance: FUROSEMIDE
     Dosage: 1 DOSAGE FORMS
     Route: 048
  3. BISOPROLOL FUMARATE. [Suspect]
     Active Substance: BISOPROLOL FUMARATE
     Indication: HYPERTENSION
     Dosage: 2.5 MG
     Route: 048
     Dates: start: 20180101, end: 20191113

REACTIONS (2)
  - Bradycardia [Unknown]
  - Hyperkalaemia [Unknown]

NARRATIVE: CASE EVENT DATE: 20191113
